FAERS Safety Report 7156768-7 (Version None)
Quarter: 2010Q4

REPORT INFORMATION
  Report Type: 
  Country: None (occurrence: None)
  Receive Date: 20101214
  Receipt Date: 20101201
  Transmission Date: 20110411
  Serious: No
  Sender: FDA-Public Use
  Company Number: US-PFIZER INC-2010162875

PATIENT
  Age: 65 Year
  Sex: Male
  Weight: 85.261 kg

DRUGS (1)
  1. ADVIL [Suspect]
     Indication: PAIN
     Route: 048

REACTIONS (1)
  - DYSPEPSIA [None]
